FAERS Safety Report 21213515 (Version 1)
Quarter: 2022Q3

REPORT INFORMATION
  Report Type: Spontaneous
  Country: FR (occurrence: FR)
  Receive Date: 20220815
  Receipt Date: 20220815
  Transmission Date: 20221026
  Serious: Yes (Hospitalization)
  Sender: FDA-Public Use
  Company Number: None

PATIENT
  Age: 38 Year
  Sex: Female

DRUGS (4)
  1. KEPPRA [Suspect]
     Active Substance: LEVETIRACETAM
     Indication: Product used for unknown indication
     Dosage: 500 MILLIGRAM, 2X/DAY (BID)
     Route: 041
     Dates: start: 20220701
  2. CLINDAMYCIN HYDROCHLORIDE [Suspect]
     Active Substance: CLINDAMYCIN HYDROCHLORIDE
     Indication: Cerebral toxoplasmosis
     Dosage: 900 MILLIGRAM, 3X/DAY (TID)
     Route: 041
     Dates: start: 20220718
  3. PYRIMETHAMINE [Suspect]
     Active Substance: PYRIMETHAMINE
     Indication: Cerebral toxoplasmosis
     Dosage: 50 MILLIGRAM, ONCE DAILY (QD)
     Dates: start: 20220715
  4. SULFADIAZINE [Suspect]
     Active Substance: SULFADIAZINE
     Indication: Cerebral toxoplasmosis
     Dosage: 2000 MILLIGRAM, 3X/DAY (TID)
     Route: 048
     Dates: start: 20220715, end: 20220718

REACTIONS (1)
  - Pancytopenia [Not Recovered/Not Resolved]

NARRATIVE: CASE EVENT DATE: 20220715
